FAERS Safety Report 8500626-X (Version None)
Quarter: 2012Q3

REPORT INFORMATION
  Report Type: 
  Country: None (occurrence: None)
  Receive Date: 20120703
  Receipt Date: 20120703
  Transmission Date: 20120928
  Serious: Yes (Hospitalization)
  Sender: FDA-Public Use
  Company Number: None

PATIENT
  Age: 47 Year
  Sex: Male
  Weight: 154.9 kg

DRUGS (1)
  1. ASPARAGINASE [Suspect]
     Indication: ACUTE LYMPHOCYTIC LEUKAEMIA
     Dosage: 13000 UNITS ONCE IV
     Route: 042
     Dates: start: 20120403, end: 20120403

REACTIONS (4)
  - CARDIAC DISORDER [None]
  - LIVER FUNCTION TEST ABNORMAL [None]
  - IDIOSYNCRATIC DRUG REACTION [None]
  - HEPATIC ENCEPHALOPATHY [None]
